FAERS Safety Report 8478808-5 (Version None)
Quarter: 2012Q2

REPORT INFORMATION
  Report Type: 
  Country: None (occurrence: None)
  Receive Date: 20120629
  Receipt Date: 20120620
  Transmission Date: 20120825
  Serious: Yes (Hospitalization)
  Sender: FDA-Public Use
  Company Number: ES-ROCHE-1080533

PATIENT
  Sex: Male
  Weight: 77 kg

DRUGS (12)
  1. CYCLOPHOSPHAMIDE [Suspect]
     Indication: CHRONIC LYMPHOCYTIC LEUKAEMIA
     Route: 042
     Dates: start: 20111103, end: 20120321
  2. SEPTRA [Concomitant]
     Indication: PROPHYLAXIS
     Dates: start: 20111102
  3. FILGRASTIM [Concomitant]
     Route: 058
     Dates: start: 20120326, end: 20120330
  4. SALMETEROL [Concomitant]
     Dates: start: 20120330, end: 20120404
  5. FLUDARABINE PHOSPHATE [Suspect]
     Indication: CHRONIC LYMPHOCYTIC LEUKAEMIA
     Route: 042
     Dates: start: 20111103, end: 20120321
  6. IPRATROPIUM BROMIDE [Concomitant]
     Dates: start: 20120326, end: 20120328
  7. PIPERACILLIN AND TAZOBACTAM [Concomitant]
     Route: 042
     Dates: start: 20120325, end: 20120330
  8. MABTHERA [Suspect]
     Indication: CHRONIC LYMPHOCYTIC LEUKAEMIA
     Route: 042
     Dates: start: 20111102, end: 20120319
  9. VORICONAZOLE [Concomitant]
     Dates: start: 20120328
  10. ALBUTEROL SULATE [Concomitant]
     Dates: start: 20120326, end: 20120327
  11. ACYCLOVIR [Concomitant]
     Indication: PROPHYLAXIS
     Dates: start: 20111102
  12. LEVOFLOXACIN [Concomitant]
     Dates: start: 20120330, end: 20120406

REACTIONS (2)
  - ASPERGILLOSIS [None]
  - FEBRILE NEUTROPENIA [None]
